FAERS Safety Report 13124942 (Version 1)
Quarter: 2017Q1

REPORT INFORMATION
  Report Type: Spontaneous
  Country: US (occurrence: US)
  Receive Date: 20170118
  Receipt Date: 20170118
  Transmission Date: 20170428
  Serious: Yes (Hospitalization, Other)
  Sender: FDA-Public Use
  Company Number: US-TEVA-729792USA

PATIENT
  Age: 20 Year
  Sex: Male

DRUGS (1)
  1. WARFARIN [Suspect]
     Active Substance: WARFARIN
     Route: 065

REACTIONS (6)
  - Oesophageal rupture [Recovering/Resolving]
  - Metabolic acidosis [Recovering/Resolving]
  - Coagulopathy [Recovering/Resolving]
  - Anaemia [Recovering/Resolving]
  - Arterial injury [Recovering/Resolving]
  - Intra-abdominal haemorrhage [Recovering/Resolving]
